FAERS Safety Report 8830600 (Version 1)
Quarter: 2012Q4

REPORT INFORMATION
  Report Type: 
  Country: GB (occurrence: GB)
  Receive Date: 20121009
  Receipt Date: 20121009
  Transmission Date: 20130627
  Serious: Yes (Hospitalization)
  Sender: FDA-Public Use
  Company Number: GB-PFIZER INC-2012246986

PATIENT

DRUGS (3)
  1. TYGACIL [Suspect]
  2. TAZOCIN [Suspect]
  3. FLUCONAZOLE [Suspect]

REACTIONS (2)
  - Dizziness [Unknown]
  - Balance disorder [Unknown]
